FAERS Safety Report 18948034 (Version 1)
Quarter: 2021Q1

REPORT INFORMATION
  Report Type: Spontaneous
  Country: IT (occurrence: IT)
  Receive Date: 20210226
  Receipt Date: 20210226
  Transmission Date: 20210420
  Serious: Yes (Other)
  Sender: FDA-Public Use
  Company Number: IT-009507513-2011ITA016717

PATIENT
  Age: 72 Year
  Sex: Male

DRUGS (1)
  1. PEMBROLIZUMAB. [Suspect]
     Active Substance: PEMBROLIZUMAB
     Indication: LUNG ADENOCARCINOMA RECURRENT
     Dosage: 200 MILLIGRAM, Q3W
     Dates: start: 20201104, end: 20201125

REACTIONS (1)
  - Immune-mediated adverse reaction [Recovered/Resolved]

NARRATIVE: CASE EVENT DATE: 20201125
